FAERS Safety Report 8620942-0 (Version None)
Quarter: 2012Q3

REPORT INFORMATION
  Report Type: 
  Country: None (occurrence: None)
  Receive Date: 20120820
  Receipt Date: 20120820
  Transmission Date: 20120928
  Serious: Yes (Other)
  Sender: FDA-Public Use
  Company Number: None

PATIENT
  Age: 74 Year
  Sex: Male
  Weight: 100 kg

DRUGS (1)
  1. TARCEVA [Suspect]
     Indication: LUNG CARCINOMA CELL TYPE UNSPECIFIED STAGE III
     Dosage: 150 MG ONCE DAILY PO
     Route: 048
     Dates: start: 20110725, end: 20120730

REACTIONS (3)
  - ULCERATIVE KERATITIS [None]
  - EYE IRRITATION [None]
  - OCULAR HYPERAEMIA [None]
